FAERS Safety Report 6195164-6 (Version None)
Quarter: 2009Q2

REPORT INFORMATION
  Report Type: 
  Country: None (occurrence: None)
  Receive Date: 20090519
  Receipt Date: 20090514
  Transmission Date: 20091009
  Serious: Yes (Hospitalization)
  Sender: FDA-Public Use
  Company Number: FR-WYE-G03678809

PATIENT
  Age: 68 Year
  Sex: Female

DRUGS (1)
  1. RHINADVIL [Suspect]
     Dosage: 2 TO 3 TABLETS TOTAL DAILY
     Route: 048
     Dates: start: 20080101, end: 20080101

REACTIONS (6)
  - ANURIA [None]
  - C-REACTIVE PROTEIN INCREASED [None]
  - GAMMA-GLUTAMYLTRANSFERASE INCREASED [None]
  - RENAL FAILURE ACUTE [None]
  - RENAL TUBULAR DISORDER [None]
  - WEIGHT DECREASED [None]
